FAERS Safety Report 21494864 (Version 8)
Quarter: 2024Q2

REPORT INFORMATION
  Report Type: Report from Study
  Country: US (occurrence: US)
  Receive Date: 20221022
  Receipt Date: 20240409
  Transmission Date: 20240716
  Serious: No
  Sender: FDA-Public Use
  Company Number: US-ABBVIE-4159373

PATIENT
  Sex: Male

DRUGS (9)
  1. IMBRUVICA [Suspect]
     Active Substance: IBRUTINIB
     Indication: Chronic lymphocytic leukaemia
     Route: 048
     Dates: start: 20221002, end: 20221002
  2. IMBRUVICA [Suspect]
     Active Substance: IBRUTINIB
     Indication: Chronic lymphocytic leukaemia
     Dosage: FORM STRENGTH: 420 MG, STOP DATE 2022
     Route: 048
     Dates: start: 20221003
  3. IMBRUVICA [Suspect]
     Active Substance: IBRUTINIB
     Indication: Chronic lymphocytic leukaemia
     Route: 048
  4. IMBRUVICA [Suspect]
     Active Substance: IBRUTINIB
     Indication: Chronic lymphocytic leukaemia
     Route: 048
     Dates: end: 20221123
  5. IMBRUVICA [Suspect]
     Active Substance: IBRUTINIB
     Indication: Chronic lymphocytic leukaemia
     Route: 048
     Dates: start: 202210
  6. TYLENOL [Concomitant]
     Active Substance: ACETAMINOPHEN
     Indication: Pain
  7. Immunoglobulin [Concomitant]
     Indication: Product used for unknown indication
     Route: 042
  8. Immunoglobulin [Concomitant]
     Indication: Product used for unknown indication
     Route: 042
  9. Immunoglobulin [Concomitant]
     Indication: Product used for unknown indication
     Route: 042

REACTIONS (18)
  - Cardiac murmur [Unknown]
  - Gait disturbance [Recovered/Resolved]
  - Arthralgia [Recovering/Resolving]
  - Pain [Unknown]
  - Insomnia [Unknown]
  - COVID-19 [Recovering/Resolving]
  - Paraesthesia [Not Recovered/Not Resolved]
  - Bone pain [Unknown]
  - Pain in extremity [Not Recovered/Not Resolved]
  - Respiratory tract congestion [Not Recovered/Not Resolved]
  - Arthralgia [Unknown]
  - Myalgia [Not Recovered/Not Resolved]
  - Joint range of motion decreased [Recovered/Resolved]
  - Joint range of motion decreased [Unknown]
  - Arthralgia [Unknown]
  - Sinus congestion [Unknown]
  - Loss of personal independence in daily activities [Unknown]
  - Mobility decreased [Unknown]

NARRATIVE: CASE EVENT DATE: 20220101
